FAERS Safety Report 7609080-3 (Version None)
Quarter: 2011Q3

REPORT INFORMATION
  Report Type: 
  Country: None (occurrence: None)
  Receive Date: 20110714
  Receipt Date: 20110713
  Transmission Date: 20111222
  Serious: Yes (Hospitalization)
  Sender: FDA-Public Use
  Company Number: JP-PFIZER INC-2011150249

PATIENT
  Age: 82 Year
  Sex: Male

DRUGS (1)
  1. VIBRAMYCIN [Suspect]
     Indication: BRONCHITIS CHRONIC
     Dosage: UNK
     Route: 048

REACTIONS (1)
  - BRONCHITIS [None]
